FAERS Safety Report 6190486-7 (Version None)
Quarter: 2009Q2

REPORT INFORMATION
  Report Type: 
  Country: None (occurrence: None)
  Receive Date: 20090514
  Receipt Date: 20090508
  Transmission Date: 20091009
  Serious: Yes (Other)
  Sender: FDA-Public Use
  Company Number: US-AVENTIS-200913117US

PATIENT
  Sex: Male
  Weight: 95 kg

DRUGS (8)
  1. LANTUS [Suspect]
     Indication: TYPE 2 DIABETES MELLITUS
     Route: 058
  2. LANTUS [Suspect]
     Route: 058
  3. OPTICLIK (INSULIN INJECTION PEN) [Suspect]
     Indication: TYPE 2 DIABETES MELLITUS
  4. NOVOLOG [Concomitant]
     Dosage: DOSE: WHEN BLOOD SUGAR REACHES 150 (2-5 UNITS)
  5. FINASTERIDE [Concomitant]
     Dosage: DOSE: UNK
  6. SIMVASTATIN [Concomitant]
     Dosage: DOSE: UNK
  7. LASIX [Concomitant]
  8. GABAPENTIN [Concomitant]
     Dosage: DOSE: UNK

REACTIONS (1)
  - VITREOUS DISORDER [None]
